FAERS Safety Report 15850707 (Version 5)
Quarter: 2020Q2

REPORT INFORMATION
  Report Type: Report from Study
  Country: US (occurrence: US)
  Receive Date: 20190121
  Receipt Date: 20200511
  Transmission Date: 20200713
  Serious: Yes (Hospitalization)
  Sender: FDA-Public Use
  Company Number: US-ACTELION-A-US2018-184040

PATIENT
  Age: 68 Year
  Sex: Male
  Weight: 52.15 kg

DRUGS (3)
  1. OPSUMIT [Suspect]
     Active Substance: MACITENTAN
     Indication: PULMONARY ARTERIAL HYPERTENSION
     Dosage: 10 MG, QD
     Route: 048
  2. NIFEDIPINE. [Concomitant]
     Active Substance: NIFEDIPINE
  3. ADEMPAS [Concomitant]
     Active Substance: RIOCIGUAT

REACTIONS (14)
  - Dyspnoea [Unknown]
  - Cough [Unknown]
  - Oedema peripheral [Unknown]
  - Rehabilitation therapy [Unknown]
  - Pulmonary oedema [Unknown]
  - Swelling [Unknown]
  - Orbital oedema [Unknown]
  - Productive cough [Unknown]
  - Constipation [Unknown]
  - Syncope [Unknown]
  - Fatigue [Unknown]
  - Haemoptysis [Unknown]
  - Fall [Unknown]
  - Emergency care [Unknown]

NARRATIVE: CASE EVENT DATE: 20181229
